FAERS Safety Report 26076407 (Version 2)
Quarter: 2025Q4

REPORT INFORMATION
  Report Type: Report from Study
  Country: US (occurrence: US)
  Receive Date: 20251121
  Receipt Date: 20251231
  Transmission Date: 20260118
  Serious: Yes (Other)
  Sender: ALEXION PHARMACEUTICALS
  Company Number: US-AstraZeneca-CH-00996042A

PATIENT
  Sex: Female

DRUGS (1)
  1. SOLIRIS [Suspect]
     Active Substance: ECULIZUMAB
     Indication: Myasthenia gravis
     Dosage: UNK
     Route: 065

REACTIONS (7)
  - Skin irritation [Unknown]
  - Headache [Unknown]
  - Pyrexia [Unknown]
  - Confusional state [Unknown]
  - Breast discomfort [Unknown]
  - Erythema [Unknown]
  - Breast pain [Unknown]
